FAERS Safety Report 16466094 (Version 1)
Quarter: 2019Q2

REPORT INFORMATION
  Report Type: Other
  Country: US (occurrence: US)
  Receive Date: 20190621
  Receipt Date: 20190621
  Transmission Date: 20190711
  Serious: No
  Sender: FDA-Public Use
  Company Number: US-ACORDA-ACO_159139_2019

PATIENT
  Sex: Male

DRUGS (1)
  1. INBRIJA [Suspect]
     Active Substance: LEVODOPA
     Indication: PRODUCT USED FOR UNKNOWN INDICATION
     Dosage: UNK UNK, QD
     Dates: start: 20190405, end: 20190604

REACTIONS (3)
  - Condition aggravated [Unknown]
  - Wrong technique in product usage process [Unknown]
  - On and off phenomenon [Unknown]
